APPROVED DRUG PRODUCT: PREGABALIN
Active Ingredient: PREGABALIN
Strength: 300MG
Dosage Form/Route: CAPSULE;ORAL
Application: A205321 | Product #008 | TE Code: AB
Applicant: AUROBINDO PHARMA LTD
Approved: Mar 29, 2023 | RLD: No | RS: No | Type: RX